FAERS Safety Report 16678712 (Version 1)
Quarter: 2019Q3

REPORT INFORMATION
  Report Type: Spontaneous
  Country: US (occurrence: US)
  Receive Date: 20190806
  Receipt Date: 20190806
  Transmission Date: 20191004
  Serious: Yes (Death)
  Sender: FDA-Public Use
  Company Number: None

PATIENT
  Age: 76 Year
  Sex: Female
  Weight: 101.25 kg

DRUGS (1)
  1. ELIQUIS [Suspect]
     Active Substance: APIXABAN
     Indication: CEREBROVASCULAR ACCIDENT
     Dosage: ?          QUANTITY:1 TABLET(S);?
     Route: 048
     Dates: start: 20190711, end: 20190731

REACTIONS (7)
  - Internal haemorrhage [None]
  - Cardio-respiratory arrest [None]
  - Haemoglobin decreased [None]
  - Renal disorder [None]
  - Transfusion [None]
  - Diabetic ketoacidosis [None]
  - Liver disorder [None]

NARRATIVE: CASE EVENT DATE: 20190731
